FAERS Safety Report 7053491-4 (Version None)
Quarter: 2010Q4

REPORT INFORMATION
  Report Type: 
  Country: None (occurrence: None)
  Receive Date: 20101020
  Receipt Date: 20101013
  Transmission Date: 20110411
  Serious: Yes (Other)
  Sender: FDA-Public Use
  Company Number: US-PFIZER INC-2010115483

PATIENT
  Sex: Female
  Weight: 54.4 kg

DRUGS (2)
  1. DEPO-PROVERA [Suspect]
     Indication: CONTRACEPTION
     Dosage: 150 MG, UNK
     Dates: start: 20100907, end: 20100907
  2. ALBUTEROL [Concomitant]
     Indication: ASTHMA
     Dosage: UNK

REACTIONS (8)
  - ERYTHEMA [None]
  - HYPERSENSITIVITY [None]
  - INJECTION SITE DISCOLOURATION [None]
  - LIVEDO RETICULARIS [None]
  - PAIN IN EXTREMITY [None]
  - SKIN REACTION [None]
  - TACHYCARDIA [None]
  - URTICARIA [None]
